FAERS Safety Report 24208327 (Version 1)
Quarter: 2024Q3

REPORT INFORMATION
  Report Type: Spontaneous
  Country: IT (occurrence: IT)
  Receive Date: 20240814
  Receipt Date: 20240814
  Transmission Date: 20241017
  Serious: Yes (Other)
  Sender: AMGEN
  Company Number: None

PATIENT
  Age: 93 Year
  Sex: Male
  Weight: 79 kg

DRUGS (4)
  1. ARANESP [Suspect]
     Active Substance: DARBEPOETIN ALFA
     Indication: Nephrogenic anaemia
     Dosage: 20 MICROGRAM, QWK
     Route: 058
     Dates: start: 20240625, end: 20240722
  2. Chiaro [Concomitant]
     Dosage: 250 MILLIGRAM
     Route: 048
     Dates: start: 202402
  3. BISOPROLOL [Concomitant]
     Active Substance: BISOPROLOL\BISOPROLOL FUMARATE
     Dosage: 1.25 MILLIGRAM
     Route: 048
     Dates: start: 2013
  4. Cletus [Concomitant]
     Dosage: 20 MILLIGRAM
     Route: 048

REACTIONS (4)
  - Dermatitis bullous [Recovering/Resolving]
  - Burning sensation [Recovering/Resolving]
  - Pruritus [Recovering/Resolving]
  - Erythema [Recovering/Resolving]

NARRATIVE: CASE EVENT DATE: 20240710
